FAERS Safety Report 9742735 (Version 2)
Quarter: 2015Q3

REPORT INFORMATION
  Report Type: Spontaneous
  Country: US (occurrence: US)
  Receive Date: 20131210
  Receipt Date: 20150805
  Transmission Date: 20151125
  Serious: No
  Sender: FDA-Public Use
  Company Number: US-GILEAD-2009-0025853

PATIENT
  Age: 50 Year
  Sex: Male
  Weight: 86.18 kg

DRUGS (6)
  1. LETAIRIS [Suspect]
     Active Substance: AMBRISENTAN
     Indication: PULMONARY ARTERIAL HYPERTENSION
     Route: 048
     Dates: start: 20090916
  2. LISINOPRIL. [Concomitant]
     Active Substance: LISINOPRIL
  3. IBUPROFEN. [Concomitant]
     Active Substance: IBUPROFEN
  4. WARFARIN [Concomitant]
     Active Substance: WARFARIN
  5. DIGOXIN. [Concomitant]
     Active Substance: DIGOXIN
  6. SPIRONOLACTONE. [Concomitant]
     Active Substance: SPIRONOLACTONE

REACTIONS (2)
  - Nasal congestion [Unknown]
  - Epistaxis [Unknown]
